FAERS Safety Report 19685771 (Version 1)
Quarter: 2021Q3

REPORT INFORMATION
  Report Type: Spontaneous
  Country: JP (occurrence: JP)
  Receive Date: 20210811
  Receipt Date: 20210811
  Transmission Date: 20211014
  Serious: Yes (Other)
  Sender: FDA-Public Use
  Company Number: JP-ROCHE-2888303

PATIENT
  Age: 77 Year
  Sex: Male

DRUGS (2)
  1. TECENTRIQ [Suspect]
     Active Substance: ATEZOLIZUMAB
     Indication: PRODUCT USED FOR UNKNOWN INDICATION
     Route: 041
     Dates: end: 20210621
  2. AVASTIN [Suspect]
     Active Substance: BEVACIZUMAB
     Indication: PRODUCT USED FOR UNKNOWN INDICATION
     Route: 041
     Dates: end: 20210621

REACTIONS (1)
  - Fracture [Unknown]

NARRATIVE: CASE EVENT DATE: 2021
